FAERS Safety Report 5450648-0 (Version None)
Quarter: 2007Q3

REPORT INFORMATION
  Report Type: 
  Country: None (occurrence: None)
  Receive Date: 20070910
  Receipt Date: 20070824
  Transmission Date: 20080115
  Serious: Yes (Other)
  Sender: FDA-Public Use
  Company Number: 8016273

PATIENT
  Sex: Male

DRUGS (3)
  1. KEPPRA [Suspect]
     Indication: PARTIAL SEIZURES
  2. AMIODARONE HCL [Suspect]
  3. COUMADIN [Concomitant]

REACTIONS (2)
  - ANAEMIA [None]
  - PLATELET COUNT DECREASED [None]
